FAERS Safety Report 5892568-3 (Version None)
Quarter: 2008Q3

REPORT INFORMATION
  Report Type: 
  Country: None (occurrence: None)
  Receive Date: 20080923
  Receipt Date: 20080911
  Transmission Date: 20090109
  Serious: Yes (Death, Hospitalization)
  Sender: FDA-Public Use
  Company Number: BD-WYE-H05994808

PATIENT
  Age: 40 Year
  Sex: Female

DRUGS (5)
  1. CEFIXIME CHEWABLE [Suspect]
     Indication: DRUG USE FOR UNKNOWN INDICATION
     Dosage: UNKNOWN
     Dates: start: 20070722, end: 20070725
  2. RANITIDINE [Concomitant]
     Indication: PAIN
     Dosage: UNKNOWN
  3. CEFTRIAXONE [Suspect]
     Indication: DRUG USE FOR UNKNOWN INDICATION
     Dosage: UNKNOWN
     Route: 042
     Dates: start: 20070801, end: 20070821
  4. AZITHROMYCIN [Suspect]
     Indication: DRUG USE FOR UNKNOWN INDICATION
     Dosage: UNKNOWN
     Dates: start: 20070701, end: 20070101
  5. DICLOFENAC [Concomitant]
     Indication: PAIN
     Dosage: UNKNOWN

REACTIONS (2)
  - ANAEMIA [None]
  - STEVENS-JOHNSON SYNDROME [None]
